FAERS Safety Report 14319016 (Version 2)
Quarter: 2019Q3

REPORT INFORMATION
  Report Type: Spontaneous
  Country: GB (occurrence: GB)
  Receive Date: 20171222
  Receipt Date: 20190710
  Transmission Date: 20191004
  Serious: Yes (Other)
  Sender: FDA-Public Use
  Company Number: GB-MYLANLABS-2017M1080368

PATIENT
  Age: 20 Year
  Sex: Male
  Weight: 63.5 kg

DRUGS (3)
  1. DOXYCYCLINE. [Suspect]
     Active Substance: DOXYCYCLINE
     Indication: ACNE
     Dosage: UNK
     Route: 048
  2. SALBUTAMOL [Concomitant]
     Active Substance: ALBUTEROL
     Dosage: UNK
  3. PROBIOTIC                          /06395501/ [Concomitant]
     Active Substance: BIFIDOBACTERIUM ANIMALIS LACTIS
     Dosage: UNK

REACTIONS (5)
  - Tearfulness [Recovering/Resolving]
  - Mental impairment [Recovering/Resolving]
  - Emotional distress [Recovering/Resolving]
  - Apathy [Recovering/Resolving]
  - Personality change [Recovering/Resolving]
